FAERS Safety Report 19358646 (Version 1)
Quarter: 2021Q2

REPORT INFORMATION
  Report Type: Spontaneous
  Country: US (occurrence: US)
  Receive Date: 20210602
  Receipt Date: 20210602
  Transmission Date: 20210717
  Serious: No
  Sender: FDA-Public Use
  Company Number: None

PATIENT
  Age: 46 Year
  Sex: Female
  Weight: 62.41 kg

DRUGS (4)
  1. DOCETAXEL. [Suspect]
     Active Substance: DOCETAXEL
  2. PACLITAXEL. [Suspect]
     Active Substance: PACLITAXEL
  3. CYCLOPHOSPHAMIDE. [Suspect]
     Active Substance: CYCLOPHOSPHAMIDE
  4. UDENYCA [Suspect]
     Active Substance: PEGFILGRASTIM-CBQV

REACTIONS (1)
  - Urticaria [None]

NARRATIVE: CASE EVENT DATE: 20210524
